FAERS Safety Report 11588410 (Version 1)
Quarter: 2015Q4

REPORT INFORMATION
  Report Type: Spontaneous
  Country: US (occurrence: None)
  Receive Date: 20151001
  Receipt Date: 20151001
  Transmission Date: 20160304
  Serious: No
  Sender: FDA-Public Use
  Company Number: None

PATIENT
  Age: 29 Year
  Sex: Female
  Weight: 100.25 kg

DRUGS (3)
  1. NUVARING [Suspect]
     Active Substance: ETHINYL ESTRADIOL\ETONOGESTREL
     Indication: CONTRACEPTION
     Dosage: 1 RING,  IN 3 WEEKS, OUT 1
     Route: 067
     Dates: start: 20150802, end: 20150930
  2. PEPPERMINT OIL [Concomitant]
     Active Substance: PEPPERMINT OIL
  3. LAVENDAR OIL [Concomitant]

REACTIONS (6)
  - Migraine [None]
  - Metrorrhagia [None]
  - Abdominal pain upper [None]
  - Menorrhagia [None]
  - Quality of life decreased [None]
  - Nausea [None]

NARRATIVE: CASE EVENT DATE: 20150930
